FAERS Safety Report 5285221-0 (Version None)
Quarter: 2007Q1

REPORT INFORMATION
  Report Type: 
  Country: None (occurrence: None)
  Receive Date: 20061229
  Receipt Date: 20060823
  Transmission Date: 20070707
  Serious: Yes (Other)
  Sender: FDA-Public Use
  Company Number: 2006UW16819

PATIENT
  Age: 56 Year
  Sex: Male
  Weight: 81.646 kg

DRUGS (6)
  1. CRESTOR [Suspect]
     Indication: BLOOD CHOLESTEROL INCREASED
     Dosage: 10 MG PO
     Route: 048
     Dates: start: 20060601, end: 20060814
  2. DIOVAN [Concomitant]
  3. FISH OIL [Concomitant]
  4. FOLIC ACID [Concomitant]
  5. ASPIRIN [Concomitant]
  6. COENZYME Q10 [Concomitant]

REACTIONS (1)
  - HERPES ZOSTER [None]
